FAERS Safety Report 19087405 (Version 4)
Quarter: 2022Q4

REPORT INFORMATION
  Report Type: Report from Study
  Country: US (occurrence: US)
  Receive Date: 20210402
  Receipt Date: 20221121
  Transmission Date: 20230113
  Serious: Yes (Other)
  Sender: FDA-Public Use
  Company Number: US-TAKEDA-2021TUS018413

PATIENT
  Age: 16 Year
  Sex: Female
  Weight: 99.7 kg

DRUGS (16)
  1. HUMAN IMMUNOGLOBULIN G\HYALURONIDASE RECOMBINANT HUMAN [Suspect]
     Active Substance: HUMAN IMMUNOGLOBULIN G\HYALURONIDASE RECOMBINANT HUMAN
     Indication: Immunodeficiency common variable
     Dosage: 30 GRAM, Q4WEEKS
     Route: 058
     Dates: start: 20181221
  2. HUMAN IMMUNOGLOBULIN G\HYALURONIDASE RECOMBINANT HUMAN [Suspect]
     Active Substance: HUMAN IMMUNOGLOBULIN G\HYALURONIDASE RECOMBINANT HUMAN
     Indication: Premature baby
  3. PROZAC [Concomitant]
     Active Substance: FLUOXETINE HYDROCHLORIDE
  4. ACETAMINOPHEN [Concomitant]
     Active Substance: ACETAMINOPHEN
  5. DIPHENHYDRAMINE [Concomitant]
     Active Substance: DIPHENHYDRAMINE
  6. LIDOCAINE\PRILOCAINE [Concomitant]
     Active Substance: LIDOCAINE\PRILOCAINE
  7. SODIUM CHLORIDE [Concomitant]
     Active Substance: SODIUM CHLORIDE
  8. EPINEPHRINE [Concomitant]
     Active Substance: EPINEPHRINE
  9. IBUPROFEN [Concomitant]
     Active Substance: IBUPROFEN
  10. UNSPECIFIED INGREDIENT [Concomitant]
     Active Substance: UNSPECIFIED INGREDIENT
  11. VITAMIN D3 [Concomitant]
     Active Substance: CHOLECALCIFEROL
  12. LEVOTHYROXINE SODIUM [Concomitant]
     Active Substance: LEVOTHYROXINE SODIUM
     Route: 065
  13. LEVOTHYROXINE [Concomitant]
     Active Substance: LEVOTHYROXINE
     Dosage: UNK
  14. VITAMINS [Concomitant]
     Active Substance: VITAMINS
  15. ADULT MULTIVITAMIN [Concomitant]
  16. AMOXICILLIN [Concomitant]
     Active Substance: AMOXICILLIN

REACTIONS (13)
  - Autoimmune disorder [Unknown]
  - Emotional distress [Unknown]
  - Foot fracture [Unknown]
  - Fall [Unknown]
  - Infusion site erythema [Unknown]
  - Infusion site swelling [Unknown]
  - Weight bearing difficulty [Unknown]
  - Erythema [Unknown]
  - Ear infection [Unknown]
  - Thyroid disorder [Unknown]
  - Furuncle [Unknown]
  - Nasopharyngitis [Unknown]
  - Infection [Unknown]

NARRATIVE: CASE EVENT DATE: 20220220
